FAERS Safety Report 8327487-6 (Version None)
Quarter: 2012Q2

REPORT INFORMATION
  Report Type: 
  Country: None (occurrence: None)
  Receive Date: 20120502
  Receipt Date: 20120423
  Transmission Date: 20120825
  Serious: Yes (Hospitalization)
  Sender: FDA-Public Use
  Company Number: US-BAYER-2012-035421

PATIENT
  Age: 26 Year
  Sex: Female
  Weight: 104.54 kg

DRUGS (5)
  1. YASMIN [Suspect]
     Dosage: UNK
     Dates: start: 20070201, end: 20090701
  2. ZOLOFT [Concomitant]
  3. SYNTHROID [Concomitant]
     Indication: HYPOTHYROIDISM
     Dosage: 25 ?G, QD
     Route: 048
  4. ATIVAN [Concomitant]
     Indication: ANXIETY
     Dosage: 1 MG, BID
     Route: 048
  5. YAZ [Suspect]
     Dosage: UNK
     Dates: start: 20070201, end: 20090701

REACTIONS (6)
  - GENERAL PHYSICAL HEALTH DETERIORATION [None]
  - DEEP VEIN THROMBOSIS [None]
  - ANXIETY [None]
  - INJURY [None]
  - EMOTIONAL DISTRESS [None]
  - PAIN [None]
